FAERS Safety Report 16955980 (Version 1)
Quarter: 2019Q4

REPORT INFORMATION
  Report Type: Spontaneous
  Country: JP (occurrence: JP)
  Receive Date: 20191024
  Receipt Date: 20191024
  Transmission Date: 20200122
  Serious: Yes (Hospitalization, Other)
  Sender: FDA-Public Use
  Company Number: PHJP2017JP029312

PATIENT
  Age: 69 Year
  Sex: Male

DRUGS (2)
  1. PACLITAXEL. [Suspect]
     Active Substance: PACLITAXEL
     Indication: PRODUCT USED FOR UNKNOWN INDICATION
     Dosage: 80 MG/M2, 3 DOSES AND 1 WASHOUT
     Route: 065
  2. VOTRIENT [Suspect]
     Active Substance: PAZOPANIB HYDROCHLORIDE
     Indication: ANGIOSARCOMA METASTATIC
     Dosage: 600 MG, QD
     Route: 048

REACTIONS (10)
  - Neoplasm progression [Unknown]
  - Purpura [Unknown]
  - Hypoaesthesia [Unknown]
  - Neoplasm skin [Unknown]
  - Thrombocytopenia [Unknown]
  - Platelet count decreased [Unknown]
  - Metastasis [Unknown]
  - Hepatic enzyme increased [Unknown]
  - Hypertension [Unknown]
  - Blood pressure increased [Unknown]
